FAERS Safety Report 17631717 (Version 1)
Quarter: 2020Q2

REPORT INFORMATION
  Report Type: Spontaneous
  Country: US (occurrence: US)
  Receive Date: 20200406
  Receipt Date: 20200406
  Transmission Date: 20200713
  Serious: Yes (Death)
  Sender: FDA-Public Use
  Company Number: None

PATIENT
  Age: 93 Year
  Sex: Male
  Weight: 90.1 kg

DRUGS (10)
  1. APIXABAN [Suspect]
     Active Substance: APIXABAN
     Indication: ATRIAL FIBRILLATION
     Route: 048
     Dates: start: 20191112, end: 20200225
  2. BUMETANIDE. [Concomitant]
     Active Substance: BUMETANIDE
     Dates: start: 20200211, end: 20200225
  3. ANTIOX #10/OM3/DHA/EPA/LUT/ZEAX (I-CAPS) [Concomitant]
     Dates: start: 20160725, end: 20200225
  4. ASPIRIN. [Concomitant]
     Active Substance: ASPIRIN
     Dates: start: 20191112, end: 20200225
  5. METOPROLOL SUCCINATE XL [Concomitant]
     Active Substance: METOPROLOL SUCCINATE
     Dates: start: 20191212, end: 20200225
  6. ISOSORBIDE MONONITRATE. [Concomitant]
     Active Substance: ISOSORBIDE MONONITRATE
     Dates: start: 20200129, end: 20200225
  7. LEVETIRACETAM. [Concomitant]
     Active Substance: LEVETIRACETAM
     Dates: start: 20191021, end: 20200227
  8. OMEPRAZOLE. [Concomitant]
     Active Substance: OMEPRAZOLE
     Dates: start: 20160725, end: 20200225
  9. ATORVASTATIN [Concomitant]
     Active Substance: ATORVASTATIN
     Dates: start: 20191112, end: 20200227
  10. CALCIUM CARBONATE/VITAMIN D3 [Concomitant]
     Active Substance: CALCIUM CARBONATE\CHOLECALCIFEROL
     Dates: start: 20160725, end: 20200225

REACTIONS (6)
  - Faeces discoloured [None]
  - Asthenia [None]
  - Gastrointestinal haemorrhage [None]
  - Shock [None]
  - Multiple organ dysfunction syndrome [None]
  - Dyspnoea [None]

NARRATIVE: CASE EVENT DATE: 20200227
